FAERS Safety Report 5121434-6 (Version None)
Quarter: 2006Q4

REPORT INFORMATION
  Report Type: 
  Country: None (occurrence: None)
  Receive Date: 20061002
  Receipt Date: 20060918
  Transmission Date: 20070319
  Serious: Yes (Other)
  Sender: FDA-Public Use
  Company Number: US200606000359

PATIENT
  Sex: Female
  Weight: 104.3 kg

DRUGS (4)
  1. ZYPREXA [Suspect]
     Dosage: 15 MG; 20 MG
     Dates: end: 20060101
  2. ZYPREXA [Suspect]
     Dosage: 15 MG; 20 MG
     Dates: start: 20040101
  3. ZIPRASIDONE HCL [Concomitant]
  4. BUPROPION HCL [Concomitant]

REACTIONS (4)
  - DIABETES MELLITUS [None]
  - HEPATITIS C [None]
  - METABOLIC DISORDER [None]
  - OBESITY [None]
